FAERS Safety Report 23546191 (Version 1)
Quarter: 2024Q1

REPORT INFORMATION
  Report Type: Spontaneous
  Country: IT (occurrence: IT)
  Receive Date: 20240220
  Receipt Date: 20240220
  Transmission Date: 20240409
  Serious: Yes (Other)
  Sender: FDA-Public Use
  Company Number: None

PATIENT
  Age: 64 Year
  Sex: Male
  Weight: 178 kg

DRUGS (2)
  1. GEMCITABINE [Suspect]
     Active Substance: GEMCITABINE
     Indication: Bladder cancer
     Dosage: START OF THERAPY 30/05/2023 - THERAPY G1 AND G8 EVERY 21 DAYS - 30/05 G1 1ST CYCLE - 06/06 G8 1ST...
     Route: 042
     Dates: start: 20230530, end: 20230606
  2. CISPLATIN [Suspect]
     Active Substance: CISPLATIN
     Indication: Bladder cancer
     Dosage: START OF THERAPY 05/30/2023 - 1ST CYCLE - G1 THERAPY EVERY 21 DAYS
     Route: 042
     Dates: start: 20230530, end: 20230530

REACTIONS (1)
  - Neutropenia [Recovering/Resolving]

NARRATIVE: CASE EVENT DATE: 20230620
